FAERS Safety Report 21025297 (Version 2)
Quarter: 2022Q3

REPORT INFORMATION
  Report Type: Spontaneous
  Country: JP (occurrence: JP)
  Receive Date: 20220630
  Receipt Date: 20220705
  Transmission Date: 20221026
  Serious: Yes (Other)
  Sender: FDA-Public Use
  Company Number: JP-JNJFOC-20220648668

PATIENT
  Age: 1 Day
  Sex: Female
  Weight: 2.214 kg

DRUGS (5)
  1. SIMPONI [Suspect]
     Active Substance: GOLIMUMAB
     Indication: Colitis ulcerative
     Dosage: DOSE UNKNOWN, ONCE A DAY, 3 TIMES OR LESS/MONTH
     Route: 064
     Dates: end: 202202
  2. LIALDA [Concomitant]
     Active Substance: MESALAMINE
     Route: 064
     Dates: end: 20220412
  3. WARFARIN [Concomitant]
     Active Substance: WARFARIN
     Dosage: IN THE MORNING
     Route: 064
     Dates: end: 20220412
  4. CLOSTRIDIUM BUTYRICUM SPORES STRAIN M-55 [Concomitant]
     Active Substance: CLOSTRIDIUM BUTYRICUM SPORES STRAIN M-55
     Route: 064
     Dates: end: 20220412
  5. FLUNITRAZEPAM [Concomitant]
     Active Substance: FLUNITRAZEPAM
     Dosage: AT BEDTIME
     Route: 064
     Dates: end: 20220412

REACTIONS (2)
  - Hypoglycaemia neonatal [Unknown]
  - Low birth weight baby [Unknown]

NARRATIVE: CASE EVENT DATE: 20220401
